FAERS Safety Report 7970127-6 (Version None)
Quarter: 2011Q4

REPORT INFORMATION
  Report Type: 
  Country: None (occurrence: None)
  Receive Date: 20111212
  Receipt Date: 20111202
  Transmission Date: 20120403
  Serious: Yes (Other)
  Sender: FDA-Public Use
  Company Number: US-US-EMD SERONO, INC.-232419J10USA

PATIENT
  Sex: Male

DRUGS (2)
  1. NEURONTIN [Concomitant]
     Indication: PARAESTHESIA
     Dates: start: 20040101
  2. REBIF [Suspect]
     Indication: MULTIPLE SCLEROSIS
     Route: 058
     Dates: start: 20041022

REACTIONS (13)
  - PARAESTHESIA [None]
  - INJECTION SITE MASS [None]
  - CHILLBLAINS [None]
  - RAYNAUD'S PHENOMENON [None]
  - INJECTION SITE INDURATION [None]
  - INJECTION SITE PAIN [None]
  - INJECTION SITE PRURITUS [None]
  - MUSCLE SPASMS [None]
  - INFLUENZA [None]
  - SUPERFICIAL VEIN PROMINENCE [None]
  - INJECTION SITE ERYTHEMA [None]
  - BLOOD CREATININE INCREASED [None]
  - NEURALGIA [None]
